FAERS Safety Report 6606644-0 (Version None)
Quarter: 2010Q1

REPORT INFORMATION
  Report Type: 
  Country: None (occurrence: None)
  Receive Date: 20100226
  Receipt Date: 20100218
  Transmission Date: 20100710
  Serious: Yes (Hospitalization)
  Sender: FDA-Public Use
  Company Number: NL-MEDIMMUNE-MEDI-0010525

PATIENT
  Sex: Male
  Weight: 9.5 kg

DRUGS (2)
  1. SYNAGIS [Suspect]
     Route: 030
     Dates: start: 20091002, end: 20100119
  2. SYNAGIS [Suspect]
     Route: 030

REACTIONS (1)
  - RESPIRATORY TRACT INFECTION [None]
